FAERS Safety Report 4397010-X (Version None)
Quarter: 2004Q3

REPORT INFORMATION
  Report Type: 
  Country: None (occurrence: None)
  Receive Date: 20040714
  Receipt Date: 20040708
  Transmission Date: 20050211
  Serious: Yes (Other)
  Sender: FDA-Public Use
  Company Number: PHBS2004BR09244

PATIENT
  Age: 53 Year
  Sex: Female
  Weight: 72 kg

DRUGS (2)
  1. TOFRANIL [Suspect]
     Route: 048
     Dates: start: 20020101
  2. TOFRANIL [Suspect]
     Dosage: 100 MG, QD
     Route: 048
     Dates: start: 20040301

REACTIONS (3)
  - FEELING ABNORMAL [None]
  - MEDICATION ERROR [None]
  - RETINAL DISORDER [None]
